FAERS Safety Report 5374096-7 (Version None)
Quarter: 2007Q2

REPORT INFORMATION
  Report Type: 
  Country: None (occurrence: None)
  Receive Date: 20070627
  Receipt Date: 20070614
  Transmission Date: 20071010
  Serious: Yes (Hospitalization)
  Sender: FDA-Public Use
  Company Number: CERZ-11749

PATIENT
  Age: 57 Year
  Sex: Female
  Weight: 73.3 kg

DRUGS (2)
  1. CEREZYME [Suspect]
     Indication: GAUCHER'S DISEASE
     Dosage: 4400 UNITS Q2WKS IV
     Route: 042
  2. CEREZYME [Suspect]

REACTIONS (2)
  - ARTHRITIS INFECTIVE [None]
  - CATHETER RELATED INFECTION [None]
